FAERS Safety Report 14630961 (Version 1)
Quarter: 2018Q1

REPORT INFORMATION
  Report Type: Spontaneous
  Country: GB (occurrence: GB)
  Receive Date: 20180313
  Receipt Date: 20180313
  Transmission Date: 20180509
  Serious: Yes (Life-Threatening, Hospitalization)
  Sender: FDA-Public Use
  Company Number: GB-MYLANLABS-2018M1017426

PATIENT
  Age: 47 Year
  Sex: Male
  Weight: 136 kg

DRUGS (6)
  1. OMEPRAZOLE SODIUM [Concomitant]
     Active Substance: OMEPRAZOLE SODIUM
     Dosage: UNK
  2. SODIUM VALPROATE [Concomitant]
     Active Substance: VALPROATE SODIUM
     Dosage: UNK
  3. CLOZAPINE. [Suspect]
     Active Substance: CLOZAPINE
     Indication: SCHIZOPHRENIA
     Dosage: 125 MG, AM
     Route: 048
     Dates: start: 20110907
  4. SIMVASTATIN. [Concomitant]
     Active Substance: SIMVASTATIN
     Dosage: UNK
  5. CLOZAPINE. [Suspect]
     Active Substance: CLOZAPINE
     Dosage: 175 MG, PM
     Route: 048
     Dates: start: 20110907
  6. BENDROFLUMETHIAZIDE [Concomitant]
     Active Substance: BENDROFLUMETHIAZIDE
     Dosage: UNK

REACTIONS (3)
  - Diabetic ketoacidosis [Recovering/Resolving]
  - Syncope [Unknown]
  - Unresponsive to stimuli [Unknown]

NARRATIVE: CASE EVENT DATE: 20180120
